FAERS Safety Report 20042190 (Version 1)
Quarter: 2021Q4

REPORT INFORMATION
  Report Type: Other
  Country: JP (occurrence: None)
  Receive Date: 20211108
  Receipt Date: 20211108
  Transmission Date: 20220304
  Serious: Yes (Other)
  Sender: FDA-Public Use
  Company Number: JP-ROCHE-2950137

PATIENT

DRUGS (5)
  1. ATEZOLIZUMAB [Suspect]
     Active Substance: ATEZOLIZUMAB
     Indication: Neoplasm malignant
     Route: 065
  2. NIVOLUMAB [Suspect]
     Active Substance: NIVOLUMAB
     Indication: Neoplasm malignant
     Route: 065
  3. PEMBROLIZUMAB [Suspect]
     Active Substance: PEMBROLIZUMAB
     Indication: Neoplasm malignant
     Route: 065
  4. DURVALUMAB [Suspect]
     Active Substance: DURVALUMAB
     Indication: Neoplasm malignant
     Route: 065
  5. IPILIMUMAB [Suspect]
     Active Substance: IPILIMUMAB
     Indication: Neoplasm malignant
     Route: 065

REACTIONS (21)
  - Hepatitis [Unknown]
  - Rash [Unknown]
  - Dermatitis [Unknown]
  - Colitis [Unknown]
  - Pneumonitis [Unknown]
  - Hyperthyroidism [Unknown]
  - Adrenal insufficiency [Unknown]
  - Hypophysitis [Unknown]
  - Diabetes mellitus [Unknown]
  - Optic neuritis [Unknown]
  - Autoimmune haemolytic anaemia [Unknown]
  - Lymphopenia [Unknown]
  - Myocarditis [Unknown]
  - Vasculitis [Unknown]
  - Pericardial effusion [Unknown]
  - Arrhythmia [Unknown]
  - Angina pectoris [Unknown]
  - Cardiac failure [Unknown]
  - Pulmonary embolism [Unknown]
  - Arthritis [Unknown]
  - Myositis [Unknown]
